FAERS Safety Report 9057548 (Version 1)
Quarter: 2013Q1

REPORT INFORMATION
  Report Type: Spontaneous
  Country: US (occurrence: None)
  Receive Date: 20130204
  Receipt Date: 20130204
  Transmission Date: 20140127
  Serious: No
  Sender: FDA-Public Use
  Company Number: None

PATIENT
  Age: 23 Year
  Sex: Male
  Weight: 72.58 kg

DRUGS (2)
  1. TRAMADOL [Suspect]
     Indication: PAIN
     Dosage: 50 MG EVERY 4-6 HOURS PO, 4-5 DOSES
     Dates: start: 20121108, end: 20121110
  2. TRAMADOL [Suspect]
     Indication: ROAD TRAFFIC ACCIDENT
     Dosage: 50 MG EVERY 4-6 HOURS PO, 4-5 DOSES
     Dates: start: 20121108, end: 20121110

REACTIONS (7)
  - Confusional state [None]
  - Depressed level of consciousness [None]
  - Vertigo [None]
  - Dizziness [None]
  - Nausea [None]
  - Pyrexia [None]
  - Loss of consciousness [None]
